FAERS Safety Report 18844318 (Version 1)
Quarter: 2021Q1

REPORT INFORMATION
  Report Type: Spontaneous
  Country: IT (occurrence: IT)
  Receive Date: 20210203
  Receipt Date: 20210203
  Transmission Date: 20210419
  Serious: Yes (Other)
  Sender: FDA-Public Use
  Company Number: IT-EXELIXIS-CABO-19026539

PATIENT
  Age: 72 Year
  Sex: Male
  Weight: 50 kg

DRUGS (9)
  1. CABOMETYX [Suspect]
     Active Substance: CABOZANTINIB S-MALATE
     Indication: HEPATOCELLULAR CARCINOMA
     Route: 048
     Dates: start: 20190906, end: 20191118
  2. FUROSEMIDE. [Concomitant]
     Active Substance: FUROSEMIDE
     Dosage: 25 MG
  3. AMLODIPINE [Concomitant]
     Active Substance: AMLODIPINE BESYLATE
     Dosage: 5 MG
  4. NORMIX [Concomitant]
     Active Substance: RIFAXIMIN
     Dosage: 200 MG
  5. AVODART [Concomitant]
     Active Substance: DUTASTERIDE
  6. XATRAL [Concomitant]
     Active Substance: ALFUZOSIN
     Dosage: 10 MG
  7. RAMIPRIL. [Concomitant]
     Active Substance: RAMIPRIL
     Dosage: 5 MG
  8. LIMPIDEX [Concomitant]
     Active Substance: LANSOPRAZOLE
     Dosage: 30 MG
  9. VIREAD [Concomitant]
     Active Substance: TENOFOVIR DISOPROXIL FUMARATE
     Dosage: 245 MG

REACTIONS (1)
  - Hypertension [Recovered/Resolved]

NARRATIVE: CASE EVENT DATE: 20191004
